FAERS Safety Report 25081736 (Version 2)
Quarter: 2025Q2

REPORT INFORMATION
  Report Type: Report from Study
  Country: CA (occurrence: CA)
  Receive Date: 20250317
  Receipt Date: 20250402
  Transmission Date: 20250716
  Serious: Yes (Other)
  Sender: ABBVIE
  Company Number: CA-ABBVIE-6174108

PATIENT
  Age: 73 Year
  Sex: Male
  Weight: 80 kg

DRUGS (2)
  1. SKYRIZI [Suspect]
     Active Substance: RISANKIZUMAB-RZAA
     Indication: Crohn^s disease
     Route: 042
     Dates: start: 20241223
  2. METHOTREXATE [Concomitant]
     Active Substance: METHOTREXATE
     Indication: Crohn^s disease
     Route: 048

REACTIONS (8)
  - Colectomy [Unknown]
  - Diarrhoea [Unknown]
  - Arthralgia [Unknown]
  - Joint swelling [Unknown]
  - Anal fistula [Unknown]
  - Intestinal anastomosis [Unknown]
  - Impaired work ability [Unknown]
  - Social problem [Unknown]

NARRATIVE: CASE EVENT DATE: 20250101
